FAERS Safety Report 7005132-X (Version None)
Quarter: 2010Q3

REPORT INFORMATION
  Report Type: 
  Country: None (occurrence: None)
  Receive Date: 20100921
  Receipt Date: 20100917
  Transmission Date: 20110219
  Serious: Yes (Death, Other)
  Sender: FDA-Public Use
  Company Number: PHHY2010ES61651

PATIENT
  Age: 35 Year
  Sex: Male

DRUGS (1)
  1. EXFORGE [Suspect]
     Indication: HYPERTENSION
     Dosage: 5 MG/160 MG, ONCE DAILY

REACTIONS (2)
  - CHEST PAIN [None]
  - ISCHAEMIC CARDIOMYOPATHY [None]
